FAERS Safety Report 5817633-8 (Version None)
Quarter: 2008Q3

REPORT INFORMATION
  Report Type: 
  Country: None (occurrence: None)
  Receive Date: 20080722
  Receipt Date: 20080717
  Transmission Date: 20090109
  Serious: Yes (Other)
  Sender: FDA-Public Use
  Company Number: ES-ROCHE-575748

PATIENT
  Age: 84 Year
  Sex: Male

DRUGS (3)
  1. TORSEMIDE [Suspect]
     Route: 065
  2. ISOSORBIDE MONONITRATE [Concomitant]
  3. NIFEDIPINE [Concomitant]

REACTIONS (2)
  - RENAL FAILURE ACUTE [None]
  - VASCULITIS [None]
